FAERS Safety Report 15427683 (Version 1)
Quarter: 2018Q3

REPORT INFORMATION
  Report Type: Spontaneous
  Country: ES (occurrence: ES)
  Receive Date: 20180925
  Receipt Date: 20180925
  Transmission Date: 20181010
  Serious: Yes (Hospitalization, Other)
  Sender: FDA-Public Use
  Company Number: ES-ALEXION PHARMACEUTICALS INC-A201812301

PATIENT
  Age: 18 Month
  Sex: Female
  Weight: 12 kg

DRUGS (3)
  1. SOLIRIS [Suspect]
     Active Substance: ECULIZUMAB
     Indication: OFF LABEL USE
  2. SOLIRIS [Suspect]
     Active Substance: ECULIZUMAB
     Indication: ATYPICAL HAEMOLYTIC URAEMIC SYNDROME
     Dosage: UNK
     Route: 065
  3. SOLIRIS [Suspect]
     Active Substance: ECULIZUMAB
     Indication: RENAL DISORDER
     Dosage: UNK
     Route: 065

REACTIONS (13)
  - Platelet count abnormal [Recovered/Resolved]
  - Haemoglobin decreased [Recovered/Resolved]
  - Schistocytosis [Recovered/Resolved]
  - Blood creatinine increased [Recovered/Resolved]
  - Infection [Unknown]
  - Chlamydia test positive [Unknown]
  - Tubulointerstitial nephritis [Unknown]
  - Blood lactate dehydrogenase increased [Recovered/Resolved]
  - Microalbuminuria [Unknown]
  - Granular cell tumour [Recovered/Resolved]
  - Chronic kidney disease [Unknown]
  - Renal tubular necrosis [Unknown]
  - Off label use [Unknown]

NARRATIVE: CASE EVENT DATE: 20180221
